FAERS Safety Report 13231756 (Version 1)
Quarter: 2017Q1

REPORT INFORMATION
  Report Type: Spontaneous
  Country: FR (occurrence: FR)
  Receive Date: 20170214
  Receipt Date: 20170214
  Transmission Date: 20170428
  Serious: Yes (Hospitalization)
  Sender: FDA-Public Use
  Company Number: FR-PFIZER INC-2017057725

PATIENT
  Age: 78 Year
  Sex: Male

DRUGS (13)
  1. LEVOTHYROX [Concomitant]
     Active Substance: LEVOTHYROXINE
     Dosage: 25 UG, 1X/DAY
  2. KARDEGIC [Concomitant]
     Active Substance: ASPIRIN LYSINE
     Dosage: 75 MG, 1X/DAY, IN THE MORNING
  3. PAROXETINE. [Concomitant]
     Active Substance: PAROXETINE
     Dosage: 20 MG, 1X/DAY, ONE TABLET IN THE MORNING
  4. DUPHALAC [Concomitant]
     Active Substance: LACTULOSE
     Dosage: 1 DF, DAILY
  5. PARACETAMOL [Concomitant]
     Active Substance: ACETAMINOPHEN
     Dosage: 1 G, 4X/DAY
  6. SERESTA [Concomitant]
     Active Substance: OXAZEPAM
     Dosage: 10 MG, 2X/DAY, ONE TABLET IN THE MORNING AND IN THE EVENING
  7. OXYNORMORO [Concomitant]
     Active Substance: OXYCODONE
     Dosage: 1 DF, 4X/DAY
  8. ZYVOXID [Suspect]
     Active Substance: LINEZOLID
     Indication: ENTEROCOCCAL INFECTION
     Dosage: 600 MG, 2X/DAY
     Route: 048
     Dates: start: 20160909, end: 20160929
  9. PANTOPRAZOLE [Concomitant]
     Active Substance: PANTOPRAZOLE SODIUM
     Dosage: 20 MG, 1X/DAY, ONE TABLET IN THE MORNING
  10. PIPERACILLIN [Concomitant]
     Active Substance: PIPERACILLIN
     Indication: PSEUDOMONAS INFECTION
     Dosage: UNK
     Dates: start: 20160909, end: 201609
  11. CLOPIDOGREL [Concomitant]
     Active Substance: CLOPIDOGREL BISULFATE
     Dosage: 1 DF, 1X/DAY,AT NOON
  12. CIFLOX /00697201/ [Concomitant]
     Active Substance: CIPROFLOXACIN
     Indication: PSEUDOMONAS INFECTION
     Dosage: UNK
     Dates: start: 20160909, end: 20160930
  13. OXYCODONE [Concomitant]
     Active Substance: OXYCODONE
     Dosage: 1 DF, 2X/DAY

REACTIONS (2)
  - Upper respiratory fungal infection [Recovered/Resolved]
  - Pancytopenia [Recovered/Resolved]

NARRATIVE: CASE EVENT DATE: 20160929
